FAERS Safety Report 5143187-8 (Version None)
Quarter: 2006Q4

REPORT INFORMATION
  Report Type: 
  Country: None (occurrence: None)
  Receive Date: 20061103
  Receipt Date: 20051212
  Transmission Date: 20070319
  Serious: Yes (Hospitalization)
  Sender: FDA-Public Use
  Company Number: US-AVENTIS-200520603US

PATIENT
  Sex: Female

DRUGS (9)
  1. LANTUS [Suspect]
     Indication: DIABETES MELLITUS NON-INSULIN-DEPENDENT
     Dates: start: 20030502, end: 20060201
  2. LANTUS [Suspect]
     Dates: start: 20020701
  3. AVANDAMET [Suspect]
     Dosage: DOSE: 500 MG, TWO DAILY
     Dates: end: 20060201
  4. ACTOS [Suspect]
     Dosage: DOSE: 15 AND 30 MG, TWO DAILY
     Dates: end: 20060201
  5. AVANDIA [Suspect]
     Dosage: DOSE: 4 MG TWO A DAY
     Dates: end: 20060201
  6. METFORMIN HCL [Suspect]
     Dosage: DOSE: 500 MG TWO A DAY
     Dates: end: 20060201
  7. PRECOSE [Concomitant]
  8. ASPIRIN [Concomitant]
     Dosage: DOSE: 4 DAILY
  9. VITAMINS [Concomitant]
     Dosage: DOSE: UNK

REACTIONS (14)
  - ABDOMINAL DISTENSION [None]
  - ASTHENIA [None]
  - BLOOD GLUCOSE INCREASED [None]
  - CHEST PAIN [None]
  - COLD SWEAT [None]
  - CONFUSIONAL STATE [None]
  - DEPRESSION [None]
  - DIZZINESS [None]
  - FATIGUE [None]
  - HEART RATE INCREASED [None]
  - MYOCARDIAL INFARCTION [None]
  - TREATMENT NONCOMPLIANCE [None]
  - TREMOR [None]
  - VISION BLURRED [None]
